FAERS Safety Report 22642027 (Version 2)
Quarter: 2023Q2

REPORT INFORMATION
  Report Type: Spontaneous
  Country: CH (occurrence: CH)
  Receive Date: 20230626
  Receipt Date: 20230626
  Transmission Date: 20230721
  Serious: Yes (Death)
  Sender: FDA-Public Use
  Company Number: CH-IMMUNOCORE, LTD-2023-IMC-001662

PATIENT

DRUGS (2)
  1. KIMMTRAK [Suspect]
     Active Substance: TEBENTAFUSP-TEBN
     Indication: Metastatic malignant melanoma
     Dosage: UNK, FIRST DOSE
     Dates: start: 20230327, end: 20230327
  2. KIMMTRAK [Suspect]
     Active Substance: TEBENTAFUSP-TEBN
     Dosage: UNK, LAST DOSE
     Dates: start: 20230419, end: 20230419

REACTIONS (2)
  - Disease progression [Fatal]
  - Off label use [Unknown]
